FAERS Safety Report 7612067-8 (Version None)
Quarter: 2011Q3

REPORT INFORMATION
  Report Type: 
  Country: None (occurrence: None)
  Receive Date: 20110715
  Receipt Date: 20110705
  Transmission Date: 20111222
  Serious: Yes (Death)
  Sender: FDA-Public Use
  Company Number: MY-GENZYME-CLOF-1001674

PATIENT
  Sex: Female

DRUGS (5)
  1. ETOPOSIDE [Suspect]
     Indication: ACUTE LYMPHOCYTIC LEUKAEMIA
     Dosage: 100 MG/M2 INFUSED OVER 2 HRS
     Route: 042
  2. CYCLOPHOSPHAMIDE [Suspect]
     Indication: ACUTE LYMPHOCYTIC LEUKAEMIA
     Dosage: 440 MG/M2 INFUSED OVER 1 HR ON DAYS 1-5
     Route: 042
     Dates: start: 20090720
  3. MESNA [Concomitant]
     Indication: PREMEDICATION
     Dosage: 180 MG/M2 TID AT 0, 4 AND 8 HRS PRE-CYCLOPHOSPHAMIDE
     Route: 042
  4. METHYLPREDNISOLONE [Concomitant]
     Indication: PREMEDICATION
     Dosage: 0.5 MG/KG, QD
     Route: 042
  5. CLOFARABINE [Suspect]
     Indication: ACUTE LYMPHOCYTIC LEUKAEMIA
     Dosage: 40 MG/M2 INFUSED OVER 2 HRS ON DAYS 1-5
     Route: 042
     Dates: start: 20090720

REACTIONS (1)
  - PULMONARY HAEMORRHAGE [None]
